FAERS Safety Report 18867815 (Version 1)
Quarter: 2021Q1

REPORT INFORMATION
  Report Type: Spontaneous
  Country: US (occurrence: US)
  Receive Date: 20210209
  Receipt Date: 20210209
  Transmission Date: 20210420
  Serious: Yes (Other)
  Sender: FDA-Public Use
  Company Number: US-GLAXOSMITHKLINE-US2021GSK023685

PATIENT
  Sex: Male

DRUGS (7)
  1. RANITIDINE CAPSULE [Suspect]
     Active Substance: RANITIDINE
     Indication: ACIDOSIS
     Dosage: 150 MG, WE
     Route: 065
     Dates: start: 201601, end: 201901
  2. ZANTAC [Suspect]
     Active Substance: RANITIDINE HYDROCHLORIDE
     Indication: ACIDOSIS
     Dosage: 150 MG, WE
     Route: 065
     Dates: start: 201601, end: 201901
  3. RANITIDINE HYDROCHLORIDE. [Suspect]
     Active Substance: RANITIDINE HYDROCHLORIDE
     Indication: ACIDOSIS
     Dosage: 150 MG, WE
     Route: 065
     Dates: start: 201601, end: 201901
  4. ZANTAC [Suspect]
     Active Substance: RANITIDINE HYDROCHLORIDE
     Indication: ACIDOSIS
     Dosage: 150 MG, WE
     Route: 065
     Dates: start: 201601, end: 201901
  5. RANITIDINE HYDROCHLORIDE. [Suspect]
     Active Substance: RANITIDINE HYDROCHLORIDE
     Indication: ACIDOSIS
     Dosage: 150 MG, WE
     Route: 065
     Dates: start: 201601, end: 201901
  6. RANITIDINE. [Suspect]
     Active Substance: RANITIDINE
     Indication: ACIDOSIS
     Dosage: 150 MG, WE
     Route: 065
     Dates: start: 201601, end: 201901
  7. ZANTAC [Suspect]
     Active Substance: RANITIDINE HYDROCHLORIDE
     Indication: ACIDOSIS
     Dosage: 150 MG, WE
     Route: 065
     Dates: start: 201601, end: 201901

REACTIONS (1)
  - Testis cancer [Unknown]
